FAERS Safety Report 6529019-1 (Version None)
Quarter: 2009Q4

REPORT INFORMATION
  Report Type: 
  Country: None (occurrence: None)
  Receive Date: 20091229
  Receipt Date: 20091021
  Transmission Date: 20100525
  Serious: Yes (Other)
  Sender: FDA-Public Use
  Company Number: 340002M09KOR

PATIENT
  Age: 35 Year
  Sex: Female

DRUGS (3)
  1. OVIDREL [Suspect]
     Indication: INFERTILITY
     Dosage: 250 MCG
     Dates: start: 20090326
  2. GONAL-F [Suspect]
     Indication: INFERTILITY
     Dates: start: 20090317, end: 20090326
  3. CETROTIDE [Suspect]
     Indication: INFERTILITY
     Dates: start: 20090323, end: 20090326

REACTIONS (1)
  - OVARIAN HAEMORRHAGE [None]
